FAERS Safety Report 5066645-3 (Version None)
Quarter: 2006Q3

REPORT INFORMATION
  Report Type: 
  Country: None (occurrence: None)
  Receive Date: 20060712
  Receipt Date: 20060523
  Transmission Date: 20061208
  Serious: No
  Sender: FDA-Public Use
  Company Number: A03200603448

PATIENT
  Age: 59 Year
  Sex: Male

DRUGS (4)
  1. UROXATRAL [Suspect]
     Indication: BENIGN PROSTATIC HYPERPLASIA
     Dosage: ORAL
     Route: 048
     Dates: start: 20060523
  2. ROSUVASTATIN [Concomitant]
  3. YODEFAN [Concomitant]
  4. ZELNORM [Concomitant]

REACTIONS (1)
  - DYSURIA [None]
